FAERS Safety Report 10261648 (Version 1)
Quarter: 2014Q2

REPORT INFORMATION
  Report Type: Report from Study
  Country: US (occurrence: US)
  Receive Date: 20140626
  Receipt Date: 20140626
  Transmission Date: 20141212
  Serious: Yes (Hospitalization)
  Sender: FDA-Public Use
  Company Number: US-SA-2014SA083239

PATIENT
  Age: 48 Year
  Sex: Male

DRUGS (4)
  1. LANTUS SOLOSTAR [Suspect]
     Indication: PRODUCT USED FOR UNKNOWN INDICATION
     Dosage: DOSE:80 UNIT(S)
     Route: 065
     Dates: start: 20140310
  2. SOLOSTAR [Concomitant]
     Dates: start: 20140310
  3. HUMALOG [Concomitant]
     Dosage: TOTALLING 60 UNITS HE BELIEVES
  4. METFORMIN [Concomitant]

REACTIONS (1)
  - Chest pain [Unknown]
